FAERS Safety Report 19123630 (Version 2)
Quarter: 2021Q2

REPORT INFORMATION
  Report Type: Report from Study
  Country: BR (occurrence: BR)
  Receive Date: 20210412
  Receipt Date: 20210625
  Transmission Date: 20210717
  Serious: Yes (Hospitalization, Other)
  Sender: FDA-Public Use
  Company Number: BR-TAKEDA-BR202018401

PATIENT
  Age: 6 Year
  Sex: Male
  Weight: 20 kg

DRUGS (4)
  1. HEMO?8R [Suspect]
     Active Substance: ANTIHEMOPHILIC FACTOR, HUMAN RECOMBINANT
     Dosage: 500 INTERNATIONAL UNIT, 3/WEEK
     Route: 042
     Dates: start: 2019
  2. HEMO?8R [Suspect]
     Active Substance: ANTIHEMOPHILIC FACTOR, HUMAN RECOMBINANT
     Dosage: 500 INTERNATIONAL UNIT, 3/WEEK
     Route: 042
     Dates: start: 2015
  3. HEMO?8R [Suspect]
     Active Substance: ANTIHEMOPHILIC FACTOR, HUMAN RECOMBINANT
     Indication: FACTOR VIII DEFICIENCY
     Dosage: 500 INTERNATIONAL UNIT, 3/WEEK
     Route: 042
  4. HEMO?8R [Suspect]
     Active Substance: ANTIHEMOPHILIC FACTOR, HUMAN RECOMBINANT
     Dosage: 500 INTERNATIONAL UNIT, 3/WEEK
     Route: 042
     Dates: start: 20191105

REACTIONS (17)
  - Gastric dilatation [Recovering/Resolving]
  - Pyrexia [Recovering/Resolving]
  - Seizure [Recovering/Resolving]
  - Sinusitis [Recovering/Resolving]
  - Product packaging quantity issue [Unknown]
  - Hypersensitivity [Unknown]
  - Abdominal discomfort [Recovering/Resolving]
  - Haematoma [Unknown]
  - Bronchitis [Unknown]
  - Skin laceration [Recovered/Resolved]
  - Anaemia [Unknown]
  - Iron deficiency anaemia [Unknown]
  - Blister [Unknown]
  - Weight increased [Unknown]
  - Cough [Unknown]
  - Fall [Recovered/Resolved]
  - Diarrhoea [Recovering/Resolving]

NARRATIVE: CASE EVENT DATE: 2020
